FAERS Safety Report 7150194-2 (Version None)
Quarter: 2010Q4

REPORT INFORMATION
  Report Type: 
  Country: None (occurrence: None)
  Receive Date: 20101210
  Receipt Date: 20101202
  Transmission Date: 20110411
  Serious: Yes (Hospitalization)
  Sender: FDA-Public Use
  Company Number: KR-BRISTOL-MYERS SQUIBB COMPANY-15324254

PATIENT
  Age: 29 Year
  Sex: Male

DRUGS (3)
  1. ARIPIPRAZOLE [Suspect]
     Indication: SCHIZOPHRENIA
     Dosage: 20MG 28SEP10- INCREASED TO 25MG ON 04OCT10;LAST DOSE:11OCT2010
     Dates: start: 20100906
  2. RIVOTRIL [Concomitant]
     Indication: PROPHYLAXIS
     Dosage: 0.5MG 30JUL08-05OCT10 1MG 06OCT10-ONG
     Route: 048
     Dates: start: 20080730
  3. INVEGA [Concomitant]
     Indication: SCHIZOPHRENIA
     Dosage: 9MG:28JUL-27SEP10;9MG:6-12SEP,13-19SEP,20-27SEP,6MG:28-03OCT,3MG BID:4OCT;3MG:05-06OCT10;
     Route: 048
     Dates: start: 20100728, end: 20101006

REACTIONS (1)
  - PSYCHOTIC DISORDER [None]
